FAERS Safety Report 8156135-3 (Version None)
Quarter: 2012Q1

REPORT INFORMATION
  Report Type: 
  Country: None (occurrence: None)
  Receive Date: 20120222
  Receipt Date: 20120216
  Transmission Date: 20120608
  Serious: Yes (Other)
  Sender: FDA-Public Use
  Company Number: US-JNJFOC-20111010317

PATIENT
  Sex: Male

DRUGS (2)
  1. RISPERDAL [Suspect]
     Indication: BIPOLAR DISORDER
     Route: 048
     Dates: start: 19990101, end: 20000701
  2. RISPERDAL [Suspect]
     Indication: PSYCHOTIC DISORDER
     Route: 048
     Dates: start: 19990101, end: 20000701

REACTIONS (5)
  - EXTRAPYRAMIDAL DISORDER [None]
  - SUICIDAL IDEATION [None]
  - WEIGHT INCREASED [None]
  - GYNAECOMASTIA [None]
  - ANHEDONIA [None]
